FAERS Safety Report 7962906 (Version 6)
Quarter: 2012Q4

REPORT INFORMATION
  Report Type: 
  Country: GR (occurrence: GR)
  Receive Date: 20110526
  Receipt Date: 20120926
  Transmission Date: 20130627
  Serious: Yes (Other)
  Sender: FDA-Public Use
  Company Number: GR-AMGEN-GRCSP2011025903

PATIENT
  Age: 56 Year
  Sex: Female

DRUGS (2)
  1. PROLIA [Suspect]
     Indication: OSTEOPOROSIS
     Dosage: UNK UNK, q2mo
     Dates: start: 20110511, end: 2011
  2. LIPITOR [Suspect]
     Indication: HYPERLIPIDAEMIA
     Dosage: 1 IU, UNK
     Route: 048
     Dates: start: 20080501

REACTIONS (1)
  - Herpes zoster [Recovered/Resolved with Sequelae]
